FAERS Safety Report 11189852 (Version 1)
Quarter: 2015Q2

REPORT INFORMATION
  Report Type: Spontaneous
  Country: US (occurrence: US)
  Receive Date: 20150615
  Receipt Date: 20150615
  Transmission Date: 20150821
  Serious: No
  Sender: FDA-Public Use
  Company Number: US-PFIZER INC-2015199465

PATIENT
  Age: 68 Year
  Sex: Female
  Weight: 51 kg

DRUGS (2)
  1. CELECOXIB. [Suspect]
     Active Substance: CELECOXIB
     Indication: ARTHRALGIA
     Dosage: UNK
     Dates: start: 201504, end: 201505
  2. CELECOXIB. [Suspect]
     Active Substance: CELECOXIB
     Indication: BACK PAIN

REACTIONS (2)
  - Abdominal distension [Not Recovered/Not Resolved]
  - Abdominal discomfort [Not Recovered/Not Resolved]

NARRATIVE: CASE EVENT DATE: 201504
